FAERS Safety Report 16070384 (Version 1)
Quarter: 2019Q1

REPORT INFORMATION
  Report Type: Spontaneous
  Country: US (occurrence: US)
  Receive Date: 20190314
  Receipt Date: 20190314
  Transmission Date: 20190418
  Serious: No
  Sender: FDA-Public Use
  Company Number: US-009507513-1902USA004565

PATIENT
  Age: 25 Year
  Sex: Female
  Weight: 47.62 kg

DRUGS (2)
  1. NEXPLANON [Suspect]
     Active Substance: ETONOGESTREL
     Indication: CONTRACEPTION
     Dosage: 68MG, 1 ROD EVERY THREE YEARS
     Route: 059
     Dates: start: 20170711
  2. NEXPLANON [Suspect]
     Active Substance: ETONOGESTREL
     Dosage: UNK
     Dates: end: 20170711

REACTIONS (3)
  - Amenorrhoea [Recovered/Resolved]
  - Device defective [Unknown]
  - Menometrorrhagia [Not Recovered/Not Resolved]

NARRATIVE: CASE EVENT DATE: 20170711
